FAERS Safety Report 4933617-6 (Version None)
Quarter: 2006Q1

REPORT INFORMATION
  Report Type: 
  Country: None (occurrence: None)
  Receive Date: 20060306
  Receipt Date: 20060216
  Transmission Date: 20060701
  Serious: Yes (Hospitalization)
  Sender: FDA-Public Use
  Company Number: JP-ROCHE-437303

PATIENT
  Age: 26 Year
  Sex: Male
  Weight: 60 kg

DRUGS (6)
  1. TAMIFLU [Suspect]
     Route: 048
     Dates: start: 20060110, end: 20060112
  2. LOPEMIN [Concomitant]
     Route: 048
     Dates: start: 19990615
  3. BIO-THREE [Concomitant]
     Route: 048
     Dates: start: 19990615
  4. ALBUMIN TANNATE [Concomitant]
     Route: 048
     Dates: start: 19990615
  5. GASTER [Concomitant]
     Route: 048
     Dates: start: 19990615
  6. PENTASA [Concomitant]
     Route: 048
     Dates: start: 19990615

REACTIONS (1)
  - RENAL FAILURE ACUTE [None]
